FAERS Safety Report 21591312 (Version 1)
Quarter: 2022Q4

REPORT INFORMATION
  Report Type: Spontaneous
  Country: US (occurrence: US)
  Receive Date: 20221114
  Receipt Date: 20221114
  Transmission Date: 20230112
  Serious: No
  Sender: FDA-Public Use
  Company Number: US-BIOGEN-2022BI01168861

PATIENT
  Sex: Female

DRUGS (19)
  1. TYSABRI [Suspect]
     Active Substance: NATALIZUMAB
     Indication: Multiple sclerosis
     Route: 050
  2. CARVEDILOL [Concomitant]
     Active Substance: CARVEDILOL
     Route: 050
  3. SPIRONOLACTONE [Concomitant]
     Active Substance: SPIRONOLACTONE
     Route: 050
  4. BENICAR [Concomitant]
     Active Substance: OLMESARTAN MEDOXOMIL
     Route: 050
  5. CLONIDINE [Concomitant]
     Active Substance: CLONIDINE
     Route: 050
  6. NIFEDIPINE [Concomitant]
     Active Substance: NIFEDIPINE
     Route: 050
  7. ZOFRAN [Concomitant]
     Active Substance: ONDANSETRON HYDROCHLORIDE
     Route: 050
  8. SINGULAIR [Concomitant]
     Active Substance: MONTELUKAST SODIUM
     Route: 050
  9. LIPITOR [Concomitant]
     Active Substance: ATORVASTATIN CALCIUM
     Route: 050
  10. ATARAX [Concomitant]
     Active Substance: HYDROXYZINE HYDROCHLORIDE
     Route: 050
  11. ZYRTEC [Concomitant]
     Active Substance: CETIRIZINE HYDROCHLORIDE
     Route: 050
  12. LEVEMIR [Concomitant]
     Active Substance: INSULIN DETEMIR
     Route: 050
  13. HUMALOG [Concomitant]
     Active Substance: INSULIN LISPRO
     Route: 050
  14. AMBIEN [Concomitant]
     Active Substance: ZOLPIDEM TARTRATE
     Route: 050
  15. ZANAFLEX [Concomitant]
     Active Substance: TIZANIDINE HYDROCHLORIDE
     Route: 050
  16. MECLIZINE [Concomitant]
     Active Substance: MECLIZINE HYDROCHLORIDE
     Route: 050
  17. PERCOCET [Concomitant]
     Active Substance: ACETAMINOPHEN\OXYCODONE HYDROCHLORIDE
     Route: 050
  18. MEDROL [Concomitant]
     Active Substance: METHYLPREDNISOLONE
     Route: 050
  19. SOLU-MEDROL [Concomitant]
     Active Substance: METHYLPREDNISOLONE SODIUM SUCCINATE
     Route: 050

REACTIONS (1)
  - Multiple sclerosis relapse [Unknown]
